FAERS Safety Report 5983649-4 (Version None)
Quarter: 2008Q4

REPORT INFORMATION
  Report Type: 
  Country: None (occurrence: None)
  Receive Date: 20081205
  Receipt Date: 20081205
  Transmission Date: 20090506
  Serious: Yes (Hospitalization)
  Sender: FDA-Public Use
  Company Number: None

PATIENT
  Sex: Male
  Weight: 96 kg

DRUGS (1)
  1. CISPLATIN [Suspect]
     Dosage: 208 MG
     Dates: end: 20081028

REACTIONS (6)
  - DEHYDRATION [None]
  - NAUSEA [None]
  - PNEUMONIA ASPIRATION [None]
  - SPUTUM CULTURE POSITIVE [None]
  - STAPHYLOCOCCAL INFECTION [None]
  - VOMITING [None]
